APPROVED DRUG PRODUCT: QUINIDINE GLUCONATE
Active Ingredient: QUINIDINE GLUCONATE
Strength: 324MG
Dosage Form/Route: TABLET, EXTENDED RELEASE;ORAL
Application: A089476 | Product #001
Applicant: HALSEY DRUG CO INC
Approved: Apr 10, 1987 | RLD: No | RS: No | Type: DISCN